FAERS Safety Report 16350496 (Version 1)
Quarter: 2019Q2

REPORT INFORMATION
  Report Type: Spontaneous
  Country: CN (occurrence: CN)
  Receive Date: 20190524
  Receipt Date: 20190524
  Transmission Date: 20190711
  Serious: Yes (Other)
  Sender: FDA-Public Use
  Company Number: CN-ROCHE-2324327

PATIENT
  Age: 61 Year
  Sex: Female

DRUGS (7)
  1. BEVACIZUMAB. [Suspect]
     Active Substance: BEVACIZUMAB
     Indication: GASTRIC CANCER
     Dosage: DAY1
     Route: 065
     Dates: start: 20160319, end: 20160526
  2. DOCETAXEL. [Suspect]
     Active Substance: DOCETAXEL
     Indication: GASTRIC CANCER
     Route: 065
     Dates: start: 20160621, end: 20160718
  3. XELODA [Suspect]
     Active Substance: CAPECITABINE
     Dosage: DAY1 TO DAY14,TWICE A DAY
     Route: 048
     Dates: start: 20160811, end: 20161130
  4. XELODA [Suspect]
     Active Substance: CAPECITABINE
     Dosage: DAY1 TO DAY14,TWICE A DAY
     Route: 048
     Dates: start: 20171011
  5. CARBOPLATIN. [Suspect]
     Active Substance: CARBOPLATIN
     Indication: GASTRIC CANCER
     Dosage: DAY2
     Route: 065
     Dates: start: 20160319, end: 20160526
  6. PACLITAXEL. [Suspect]
     Active Substance: PACLITAXEL
     Indication: GASTRIC CANCER
     Dosage: DAY2
     Route: 065
     Dates: start: 20160319, end: 20160526
  7. XELODA [Suspect]
     Active Substance: CAPECITABINE
     Indication: GASTRIC CANCER
     Dosage: DAY1 TO DAY14,TWICE A DAY
     Route: 048
     Dates: start: 20160621, end: 20160718

REACTIONS (5)
  - Dyspepsia [Recovering/Resolving]
  - Bone marrow failure [Unknown]
  - Abdominal discomfort [Recovering/Resolving]
  - Gastrooesophageal reflux disease [Recovering/Resolving]
  - Palmar-plantar erythrodysaesthesia syndrome [Unknown]
